FAERS Safety Report 12923844 (Version 1)
Quarter: 2016Q4

REPORT INFORMATION
  Report Type: Spontaneous
  Country: FR (occurrence: FR)
  Receive Date: 20161108
  Receipt Date: 20161108
  Transmission Date: 20170207
  Serious: Yes (Hospitalization)
  Sender: FDA-Public Use
  Company Number: FR-PFIZER INC-2016502868

PATIENT
  Age: 60 Year
  Sex: Male
  Weight: 100 kg

DRUGS (6)
  1. ATORVASTATIN [Concomitant]
     Active Substance: ATORVASTATIN
     Dosage: 10 MG, 1X/DAY
     Route: 048
  2. ETOPOSIDE TEVA [Suspect]
     Active Substance: ETOPOSIDE
     Indication: BRONCHIAL CARCINOMA
     Dosage: 210 MG, 1X/DAY
     Route: 042
     Dates: start: 20160314, end: 20160316
  3. PLAVIX [Concomitant]
     Active Substance: CLOPIDOGREL BISULFATE
     Dosage: 75 MG, 1X/DAY
     Route: 048
  4. PANTOPRAZOLE [Concomitant]
     Active Substance: PANTOPRAZOLE SODIUM
     Dosage: 20 MG, 1X/DAY
     Route: 048
  5. CARBOPLATINE HOSPIRA [Suspect]
     Active Substance: CARBOPLATIN
     Indication: BRONCHIAL CARCINOMA
     Dosage: 830 MG, 1X/DAY
     Route: 042
     Dates: start: 20160314, end: 20160314
  6. CELIPROLOL [Concomitant]
     Active Substance: CELIPROLOL
     Dosage: 100 MG, 1X/DAY
     Route: 048

REACTIONS (1)
  - Febrile bone marrow aplasia [Recovered/Resolved]

NARRATIVE: CASE EVENT DATE: 20160325
